FAERS Safety Report 7723988-X (Version None)
Quarter: 2011Q3

REPORT INFORMATION
  Report Type: 
  Country: None (occurrence: None)
  Receive Date: 20110901
  Receipt Date: 20110822
  Transmission Date: 20111222
  Serious: Yes (Death)
  Sender: FDA-Public Use
  Company Number: DE-ACTELION-A-CH2011-53009

PATIENT
  Age: 53 Year
  Sex: Male

DRUGS (3)
  1. TRACLEER [Suspect]
     Dosage: 62.5 MG, BID
     Route: 048
  2. SILDENAFIL CITRATE [Concomitant]
  3. TRACLEER [Suspect]
     Indication: SKIN ULCER
     Dosage: 125 MG, BID
     Route: 048

REACTIONS (1)
  - LUNG INFECTION [None]
